FAERS Safety Report 7937984-0 (Version None)
Quarter: 2011Q4

REPORT INFORMATION
  Report Type: 
  Country: None (occurrence: None)
  Receive Date: 20111123
  Receipt Date: 20111118
  Transmission Date: 20120403
  Serious: Yes (Hospitalization)
  Sender: FDA-Public Use
  Company Number: DE-GILEAD-2011-0046801

PATIENT
  Sex: Female

DRUGS (4)
  1. ACC                                /00082801/ [Concomitant]
     Dosage: 600 MG, UNK
     Route: 048
  2. CITALOPRAM HYDROBROMIDE [Suspect]
     Dosage: 60 MG, UNK
     Route: 048
  3. VIREAD [Suspect]
     Indication: HEPATITIS B
     Dosage: 245 MG, UNK
     Dates: start: 20110401
  4. SEROQUEL [Suspect]
     Dosage: 150 MG, UNK
     Route: 048

REACTIONS (1)
  - DERMATITIS [None]
